FAERS Safety Report 12267335 (Version 1)
Quarter: 2016Q2

REPORT INFORMATION
  Report Type: Spontaneous
  Country: US (occurrence: None)
  Receive Date: 20160413
  Receipt Date: 20160413
  Transmission Date: 20160815
  Serious: Yes (Hospitalization)
  Sender: FDA-Public Use
  Company Number: None

PATIENT
  Age: 71 Year
  Sex: Male
  Weight: 89.4 kg

DRUGS (4)
  1. MILK OF MAGNESIA [Concomitant]
     Active Substance: MAGNESIUM HYDROXIDE
  2. OXYCODONE [Concomitant]
     Active Substance: OXYCODONE
  3. REGORAFINIB 40 MG BAYER [Suspect]
     Active Substance: REGORAFENIB
     Indication: COLORECTAL CANCER METASTATIC
     Dosage: 80 DAILY ORAL
     Route: 048
     Dates: start: 20160330
  4. FENTANYL. [Concomitant]
     Active Substance: FENTANYL

REACTIONS (5)
  - Small intestinal obstruction [None]
  - Abdominal pain [None]
  - Pneumonia [None]
  - Septic shock [None]
  - Acute kidney injury [None]

NARRATIVE: CASE EVENT DATE: 20160406
